FAERS Safety Report 9392922 (Version 1)
Quarter: 2013Q3

REPORT INFORMATION
  Report Type: Spontaneous
  Country: US (occurrence: US)
  Receive Date: 20130710
  Receipt Date: 20130710
  Transmission Date: 20140515
  Serious: No
  Sender: FDA-Public Use
  Company Number: US-PFIZER INC-2013201774

PATIENT
  Age: 74 Year
  Sex: Female
  Weight: 54.88 kg

DRUGS (2)
  1. GABAPENTIN [Suspect]
     Indication: RESTLESS LEGS SYNDROME
     Dosage: 100 MG ONCE A DAY
     Route: 048
     Dates: start: 20130704
  2. ROPINIROLE HYDROCHLORIDE [Suspect]
     Indication: RESTLESS LEGS SYNDROME
     Dosage: UNK

REACTIONS (3)
  - Off label use [Unknown]
  - Insomnia [Unknown]
  - Drug ineffective for unapproved indication [Unknown]
